FAERS Safety Report 11146536 (Version 3)
Quarter: 2015Q3

REPORT INFORMATION
  Report Type: Spontaneous
  Country: US (occurrence: US)
  Receive Date: 20150528
  Receipt Date: 20150714
  Transmission Date: 20151125
  Serious: No
  Sender: FDA-Public Use
  Company Number: US-SHIRE-US201504593

PATIENT
  Age: 9 Year
  Sex: Male

DRUGS (1)
  1. DEXTROAMPHET SACCHARAT, AMPHET ASPARTATE, DEXTROAMPHET SULFATE AND AMPHET SULFAT [Suspect]
     Active Substance: AMPHETAMINE ASPARTATE\AMPHETAMINE SULFATE\DEXTROAMPHETAMINE SACCHARATE\DEXTROAMPHETAMINE SULFATE
     Indication: ATTENTION DEFICIT/HYPERACTIVITY DISORDER
     Dosage: 15 MG, UNKNOWN
     Route: 048
     Dates: start: 2015, end: 2015

REACTIONS (5)
  - Drug effect decreased [Recovered/Resolved]
  - Disturbance in attention [Unknown]
  - Educational problem [Unknown]
  - Drug ineffective [Recovered/Resolved]
  - Impulsive behaviour [Unknown]

NARRATIVE: CASE EVENT DATE: 2015
